FAERS Safety Report 25245763 (Version 1)
Quarter: 2025Q2

REPORT INFORMATION
  Report Type: Spontaneous
  Country: JP (occurrence: JP)
  Receive Date: 20250428
  Receipt Date: 20250428
  Transmission Date: 20250716
  Serious: Yes (Life-Threatening, Hospitalization, Other)
  Sender: MERCK SHARP & DOHME LLC
  Company Number: JP-009507513-2260999

PATIENT
  Age: 79 Year
  Sex: Male

DRUGS (5)
  1. PEMBROLIZUMAB [Suspect]
     Active Substance: PEMBROLIZUMAB
     Indication: Transitional cell carcinoma
     Dates: start: 202401, end: 20240323
  2. SITAGLIPTIN [Suspect]
     Active Substance: SITAGLIPTIN
     Route: 048
  3. ENFORTUMAB VEDOTIN [Suspect]
     Active Substance: ENFORTUMAB VEDOTIN
     Indication: Ureteric cancer
     Dates: start: 20240407
  4. ENFORTUMAB VEDOTIN [Suspect]
     Active Substance: ENFORTUMAB VEDOTIN
     Indication: Ureteric cancer
     Dates: start: 20240513
  5. IPRAGLIFLOZIN [Concomitant]
     Active Substance: IPRAGLIFLOZIN
     Route: 048

REACTIONS (10)
  - Diabetic ketoacidosis [Recovered/Resolved]
  - Adrenal insufficiency [Unknown]
  - Malignant neoplasm progression [Unknown]
  - Liver abscess [Unknown]
  - Pyrexia [Unknown]
  - Protein urine present [Unknown]
  - Shock [Unknown]
  - Adrenocorticotropic hormone deficiency [Recovered/Resolved]
  - Movement disorder [Unknown]
  - Feeding disorder [Unknown]

NARRATIVE: CASE EVENT DATE: 20240101
